FAERS Safety Report 24806391 (Version 3)
Quarter: 2025Q2

REPORT INFORMATION
  Report Type: Report from Study
  Country: US (occurrence: US)
  Receive Date: 20250103
  Receipt Date: 20250513
  Transmission Date: 20250717
  Serious: No
  Sender: SUNOVION
  Company Number: US-SMPA-2024SPA006383AA

PATIENT

DRUGS (2)
  1. ORGOVYX [Suspect]
     Active Substance: RELUGOLIX
     Indication: Prostate cancer
     Route: 048
  2. ORGOVYX [Suspect]
     Active Substance: RELUGOLIX
     Dosage: 120 MG, QD
     Route: 048
     Dates: start: 20241208

REACTIONS (4)
  - Gastrooesophageal reflux disease [Unknown]
  - Heart rate increased [Unknown]
  - Insomnia [Unknown]
  - Fatigue [Unknown]
